FAERS Safety Report 7634109-6 (Version None)
Quarter: 2011Q3

REPORT INFORMATION
  Report Type: 
  Country: None (occurrence: None)
  Receive Date: 20110725
  Receipt Date: 20110721
  Transmission Date: 20111222
  Serious: No
  Sender: FDA-Public Use
  Company Number: US-PFIZER INC-2011166340

PATIENT
  Sex: Male
  Weight: 99 kg

DRUGS (5)
  1. ZITHROMAX [Concomitant]
     Dosage: UNK
  2. DILANTIN [Suspect]
     Indication: CONVULSION
     Dosage: 300 MG, 2X/DAY
     Route: 048
     Dates: start: 19850101, end: 19880101
  3. ZANTAC [Concomitant]
     Dosage: UNK
  4. DILANTIN [Suspect]
     Dosage: 300 MG, 2X/DAY
     Dates: start: 20110601
  5. DILANTIN [Suspect]
     Dosage: 300 MG, 2X/DAY
     Route: 048
     Dates: start: 19880101, end: 20110601

REACTIONS (1)
  - NAUSEA [None]
